FAERS Safety Report 6308222-X (Version None)
Quarter: 2009Q3

REPORT INFORMATION
  Report Type: 
  Country: None (occurrence: None)
  Receive Date: 20090813
  Receipt Date: 20090801
  Transmission Date: 20100115
  Serious: Yes (Other)
  Sender: FDA-Public Use
  Company Number: CO-PFIZER INC-2009247583

PATIENT
  Age: 64 Year

DRUGS (3)
  1. ZOLOFT [Suspect]
     Indication: DEPRESSION
     Dosage: 50 MG, 1X/DAY
     Route: 048
     Dates: start: 20030101
  2. XANAX [Suspect]
     Indication: PANIC ATTACK
     Dosage: 0.5 MG, 3X/DAY
     Route: 048
     Dates: start: 20030101
  3. VERAPAMIL HCL [Suspect]
     Indication: TACHYCARDIA
     Dosage: 40 MG, 1X/DAY
     Route: 048
     Dates: start: 20030101

REACTIONS (5)
  - HAEMOPTYSIS [None]
  - PANIC ATTACK [None]
  - TACHYCARDIA [None]
  - VASCULAR CALCIFICATION [None]
  - VITREOUS DETACHMENT [None]
